FAERS Safety Report 7998136-1 (Version None)
Quarter: 2011Q4

REPORT INFORMATION
  Report Type: 
  Country: None (occurrence: None)
  Receive Date: 20111221
  Receipt Date: 20110228
  Transmission Date: 20120403
  Serious: No
  Sender: FDA-Public Use
  Company Number: US-GLAXOSMITHKLINE-A0915856A

PATIENT
  Age: 61 Year
  Sex: Female

DRUGS (5)
  1. ZETIA [Concomitant]
  2. ENALAPRIL MALEATE [Concomitant]
  3. SYNTHROID [Concomitant]
  4. HYZAAR [Concomitant]
  5. LOVAZA [Suspect]
     Indication: BLOOD TRIGLYCERIDES INCREASED
     Dosage: 2CAP TWICE PER DAY
     Route: 048
     Dates: start: 20100601

REACTIONS (1)
  - BLOOD CHOLESTEROL DECREASED [None]
